FAERS Safety Report 6669084-4 (Version None)
Quarter: 2010Q2

REPORT INFORMATION
  Report Type: 
  Country: None (occurrence: None)
  Receive Date: 20100402
  Receipt Date: 20100324
  Transmission Date: 20101027
  Serious: Yes (Congenital Anomaly)
  Sender: FDA-Public Use
  Company Number: 310007J09USA

PATIENT

DRUGS (2)
  1. GONAL-F [Suspect]
     Indication: INFERTILITY
     Dates: end: 20090505
  2. CHORIONIC GONADOTROPIN [Suspect]
     Indication: INFERTILITY
     Dates: end: 20090505

REACTIONS (5)
  - ABORTION SPONTANEOUS [None]
  - CHROMOSOMAL DELETION [None]
  - CONGENITAL ANOMALY [None]
  - FOETAL CARDIAC DISORDER [None]
  - MATERNAL DRUGS AFFECTING FOETUS [None]
